FAERS Safety Report 8402626-7 (Version None)
Quarter: 2012Q2

REPORT INFORMATION
  Report Type: 
  Country: None (occurrence: None)
  Receive Date: 20120601
  Receipt Date: 20120529
  Transmission Date: 20120825
  Serious: Yes (Hospitalization)
  Sender: FDA-Public Use
  Company Number: PHEH2012US010962

PATIENT
  Sex: Female

DRUGS (4)
  1. VALTURNA [Suspect]
  2. ZOCOR [Concomitant]
     Dosage: UNK UKN, UNK
  3. PRILOSEC [Concomitant]
     Dosage: UNK UKN, UNK
  4. LORAZEPAM [Concomitant]
     Dosage: UNK UKN, UNK

REACTIONS (3)
  - BLOOD PRESSURE DECREASED [None]
  - KIDNEY INFECTION [None]
  - ANAEMIA [None]
